FAERS Safety Report 4844496-X (Version None)
Quarter: 2005Q4

REPORT INFORMATION
  Report Type: 
  Country: None (occurrence: None)
  Receive Date: 20051203
  Receipt Date: 20051012
  Transmission Date: 20060501
  Serious: Yes (Hospitalization)
  Sender: FDA-Public Use
  Company Number: PHRM2005FR02698

PATIENT
  Age: 75 Year
  Sex: Female

DRUGS (4)
  1. GLEEVEC [Suspect]
     Indication: CHRONIC MYELOID LEUKAEMIA
     Dosage: 400 MG DAILY
     Route: 048
     Dates: start: 20020501, end: 20030101
  2. GLEEVEC [Suspect]
     Dosage: 200 MG DAILY
     Route: 048
     Dates: start: 20030101
  3. LOXEN [Concomitant]
     Indication: HYPERTENSION
     Route: 048
  4. ASPEGIC 325 [Concomitant]
     Route: 048

REACTIONS (2)
  - MYASTHENIC SYNDROME [None]
  - PARANEOPLASTIC SYNDROME [None]
